FAERS Safety Report 7137415-7 (Version None)
Quarter: 2010Q4

REPORT INFORMATION
  Report Type: 
  Country: None (occurrence: None)
  Receive Date: 20101206
  Receipt Date: 20101123
  Transmission Date: 20110411
  Serious: Yes (Death)
  Sender: FDA-Public Use
  Company Number: US-CELGENEUS-163-21880-10110179

PATIENT
  Sex: Male

DRUGS (5)
  1. REVLIMID [Suspect]
     Indication: CHRONIC LYMPHOCYTIC LEUKAEMIA
     Route: 048
     Dates: start: 20101009, end: 20101030
  2. GLYBURIDE [Concomitant]
     Route: 065
  3. SIMVASTATIN [Concomitant]
     Route: 048
  4. FOSINOPRIL SODIUM [Concomitant]
     Route: 048
  5. LASIX [Concomitant]
     Route: 048

REACTIONS (2)
  - ACUTE MYOCARDIAL INFARCTION [None]
  - MALIGNANT NEOPLASM PROGRESSION [None]
